FAERS Safety Report 23034206 (Version 1)
Quarter: 2023Q4

REPORT INFORMATION
  Report Type: Spontaneous
  Country: JP (occurrence: JP)
  Receive Date: 20231005
  Receipt Date: 20231005
  Transmission Date: 20240109
  Serious: Yes (Other)
  Sender: FDA-Public Use
  Company Number: JP-GSKNCCC-Case-01822049_AE-75722

PATIENT

DRUGS (1)
  1. SERETIDE [Suspect]
     Active Substance: FLUTICASONE PROPIONATE\SALMETEROL XINAFOATE
     Indication: Asthma
     Dosage: UNK, BID, IN THE MORNING AND EVENING

REACTIONS (4)
  - Tracheal stenosis [Unknown]
  - Cough [Unknown]
  - Hypersensitivity [Unknown]
  - Therapy interrupted [Unknown]
